FAERS Safety Report 9224611 (Version 1)
Quarter: 2013Q1

REPORT INFORMATION
  Report Type: Spontaneous
  Country: US (occurrence: None)
  Receive Date: 20120917
  Receipt Date: 20120917
  Transmission Date: 20140127
  Serious: Yes (Other)
  Sender: FDA-Public Use
  Company Number: 1000029385

PATIENT
  Age: 50 Year
  Sex: Female

DRUGS (2)
  1. CELEXA (CITALOPRAM HYDROBROMIDE) [Suspect]
     Indication: DEPRESSION
     Dates: start: 201112
  2. SYNTHROID (LEVOTHYROXINE SODIUM) [Suspect]
     Indication: HYPOTHYROIDISM

REACTIONS (4)
  - Grand mal convulsion [None]
  - Syncope [None]
  - Anger [None]
  - Delusion [None]
